FAERS Safety Report 22118319 (Version 5)
Quarter: 2025Q3

REPORT INFORMATION
  Report Type: Report from Study
  Country: EU (occurrence: EU)
  Receive Date: 20230321
  Receipt Date: 20250714
  Transmission Date: 20251021
  Serious: Yes (Hospitalization)
  Sender: ROCHE
  Company Number: EU-ROCHE-3202101

PATIENT
  Age: 62 Year
  Sex: Male
  Weight: 68.0 kg

DRUGS (26)
  1. ATEZOLIZUMAB [Suspect]
     Active Substance: ATEZOLIZUMAB
     Indication: Small cell lung cancer metastatic
     Dosage: START DATE OF MOST RECENT DOSE OF STUDY DRUG PRIOR TO AE: 25/NOV/2022, 16-DEC-2022
     Route: 042
     Dates: start: 20220718
  2. CARBOPLATIN [Suspect]
     Active Substance: CARBOPLATIN
     Indication: Small cell lung cancer metastatic
     Route: 065
     Dates: start: 20220718
  3. ETOPOSIDE [Suspect]
     Active Substance: ETOPOSIDE
     Indication: Small cell lung cancer metastatic
     Route: 042
     Dates: start: 20220718
  4. ETOPOSIDE [Suspect]
     Active Substance: ETOPOSIDE
     Route: 048
     Dates: start: 20220719
  5. NETUPITANT [Concomitant]
     Active Substance: NETUPITANT
     Dates: start: 20220809, end: 20220809
  6. NETUPITANT [Concomitant]
     Active Substance: NETUPITANT
     Dates: start: 20220718, end: 20220718
  7. NETUPITANT [Concomitant]
     Active Substance: NETUPITANT
     Dates: start: 20220923, end: 20220923
  8. NETUPITANT [Concomitant]
     Active Substance: NETUPITANT
     Dates: start: 20220902, end: 20220902
  9. PALONOSETRON [Concomitant]
     Active Substance: PALONOSETRON
     Dates: start: 20220809, end: 20220809
  10. PALONOSETRON [Concomitant]
     Active Substance: PALONOSETRON
     Dates: start: 20220718, end: 20220718
  11. PALONOSETRON [Concomitant]
     Active Substance: PALONOSETRON
     Dates: start: 20220902, end: 20220902
  12. PALONOSETRON [Concomitant]
     Active Substance: PALONOSETRON
     Dates: start: 20220923, end: 20220923
  13. DEXAMETHASONE [Concomitant]
     Active Substance: DEXAMETHASONE
     Dates: start: 20220809, end: 20220809
  14. DEXAMETHASONE [Concomitant]
     Active Substance: DEXAMETHASONE
     Dates: start: 20220718, end: 20220718
  15. DEXAMETHASONE [Concomitant]
     Active Substance: DEXAMETHASONE
     Dates: start: 20220902, end: 20220902
  16. DEXAMETHASONE [Concomitant]
     Active Substance: DEXAMETHASONE
     Dates: start: 20220923, end: 20220923
  17. MYCOSTATIN [Concomitant]
     Active Substance: NYSTATIN
     Dates: start: 20220724
  18. ALBUTEROL [Concomitant]
     Active Substance: ALBUTEROL
     Dates: start: 20220616
  19. POLARAMINE [Concomitant]
     Active Substance: DEXCHLORPHENIRAMINE MALEATE
     Dates: start: 20220809, end: 20220809
  20. IPRATROPIUM BROMIDE [Concomitant]
     Active Substance: IPRATROPIUM BROMIDE
     Dates: start: 20220616
  21. LORAZEPAM [Concomitant]
     Active Substance: LORAZEPAM
     Dates: start: 20220624
  22. ACTOCORTIN [Concomitant]
     Dates: start: 20220809, end: 20220809
  23. DEXAMETHASONE [Concomitant]
     Active Substance: DEXAMETHASONE
     Dosage: SUBSEQUENT DOSE ON 03/SEP/2022 TO 05/SEP/2022 AND 24/SEP/2022 TO 25/SEP/2022
     Dates: start: 20220810, end: 20220812
  24. DEXAMETHASONE [Concomitant]
     Active Substance: DEXAMETHASONE
     Dates: start: 20220902, end: 20220902
  25. DEXAMETHASONE [Concomitant]
     Active Substance: DEXAMETHASONE
     Dates: start: 20220809, end: 20220809
  26. DEXAMETHASONE [Concomitant]
     Active Substance: DEXAMETHASONE
     Dates: start: 20220903, end: 20220903

REACTIONS (8)
  - Mucosal inflammation [Recovered/Resolved]
  - Respiratory tract infection [Recovered/Resolved]
  - Chest discomfort [Recovered/Resolved]
  - Mucosal inflammation [Recovered/Resolved]
  - Pyrexia [Recovered/Resolved]
  - Asthenia [Recovering/Resolving]
  - Cough [Recovered/Resolved]
  - Dyspnoea [Recovered/Resolved]

NARRATIVE: CASE EVENT DATE: 20220724
